FAERS Safety Report 20407350 (Version 2)
Quarter: 2022Q2

REPORT INFORMATION
  Report Type: Spontaneous
  Country: JP (occurrence: JP)
  Receive Date: 20220131
  Receipt Date: 20220502
  Transmission Date: 20220720
  Serious: Yes (Life-Threatening, Hospitalization, Disabling, Other)
  Sender: FDA-Public Use
  Company Number: JP-PFIZER INC-202200144492

PATIENT
  Age: 67 Year
  Sex: Female
  Weight: 57.6 kg

DRUGS (4)
  1. RHEUMATREX [Suspect]
     Active Substance: METHOTREXATE SODIUM
     Indication: Rheumatoid arthritis
     Dosage: 2 MG, 3X/DAY
     Route: 048
     Dates: start: 20211222, end: 20220109
  2. CELECOXIB [Concomitant]
     Active Substance: CELECOXIB
     Indication: Rheumatoid arthritis
     Dosage: 25 MG, 1X/DAY
     Route: 048
     Dates: start: 20211222, end: 20220109
  3. IGURATIMOD [Concomitant]
     Active Substance: IGURATIMOD
     Indication: Rheumatoid arthritis
     Dosage: 100 MG, 2X/DAY
     Route: 048
     Dates: start: 20211222, end: 20220109
  4. PREDONINE [Concomitant]
     Active Substance: PREDNISOLONE
     Indication: Rheumatoid arthritis
     Dosage: 5 MG, 2X/DAY
     Route: 048
     Dates: start: 20220107, end: 20220109

REACTIONS (8)
  - Overdose [Recovered/Resolved with Sequelae]
  - Toxicity to various agents [Recovered/Resolved with Sequelae]
  - Pancytopenia [Recovered/Resolved with Sequelae]
  - Infection [Recovered/Resolved]
  - Platelet count decreased [Recovered/Resolved with Sequelae]
  - Mouth haemorrhage [Recovered/Resolved with Sequelae]
  - Asphyxia [Recovered/Resolved with Sequelae]
  - Alopecia [Recovered/Resolved with Sequelae]

NARRATIVE: CASE EVENT DATE: 20211201
